FAERS Safety Report 10233391 (Version 1)
Quarter: 2014Q2

REPORT INFORMATION
  Report Type: Spontaneous
  Country: NL (occurrence: None)
  Receive Date: 20140610
  Receipt Date: 20140610
  Transmission Date: 20141212
  Serious: Yes (Hospitalization)
  Sender: FDA-Public Use
  Company Number: 2014-001649

PATIENT
  Age: 65 Year
  Sex: Female
  Weight: 63 kg

DRUGS (2)
  1. ACTONEL (RISEDRONATE SODIUM) TABLET, 35MG [Suspect]
     Indication: OSTEOPOROSIS
     Route: 048
     Dates: start: 2013, end: 201404
  2. ASCAL BRISPER CARDIO-NEURO (ACETYSALICYLIC ACID, CARBASALATE CALCIUM ) [Concomitant]

REACTIONS (3)
  - Dyspnoea [None]
  - Cardiac disorder [None]
  - Heart rate increased [None]
